FAERS Safety Report 5410372-7 (Version None)
Quarter: 2007Q3

REPORT INFORMATION
  Report Type: 
  Country: None (occurrence: None)
  Receive Date: 20070808
  Receipt Date: 20070720
  Transmission Date: 20080115
  Serious: Yes (Hospitalization, Other)
  Sender: FDA-Public Use
  Company Number: 2007-FR-000248

PATIENT
  Age: 5 Year
  Sex: Male
  Weight: 21.4 kg

DRUGS (3)
  1. INCRELEX [Suspect]
     Indication: HYPOPITUITARISM
     Dosage: 3.4 MG, BID; SUBCUTAENOUS
     Route: 058
     Dates: start: 20070709, end: 20070715
  2. LEVOTHYROXINE SODIUM [Concomitant]
  3. HYDROCORTISONE [Concomitant]

REACTIONS (5)
  - EYE PRURITUS [None]
  - EYELID OEDEMA [None]
  - HYPERSENSITIVITY [None]
  - INJECTION SITE ERYTHEMA [None]
  - RASH [None]
